FAERS Safety Report 16872546 (Version 3)
Quarter: 2019Q4

REPORT INFORMATION
  Report Type: Spontaneous
  Country: TW (occurrence: TW)
  Receive Date: 20191001
  Receipt Date: 20191031
  Transmission Date: 20200122
  Serious: No
  Sender: FDA-Public Use
  Company Number: TW-BEH-2019107410

PATIENT
  Age: 3 Year
  Sex: Female
  Weight: 14.7 kg

DRUGS (2)
  1. PRIVIGEN [Suspect]
     Active Substance: HUMAN IMMUNOGLOBULIN G
     Indication: IMMUNOGLOBULIN THERAPY
     Dosage: UNK
     Route: 042
     Dates: start: 20190924
  2. PRIVIGEN [Suspect]
     Active Substance: HUMAN IMMUNOGLOBULIN G
     Dosage: 15 GRAM FOR 2 DAYS
     Route: 042
     Dates: start: 20190901, end: 20190903

REACTIONS (1)
  - Vomiting [Recovered/Resolved]
